FAERS Safety Report 13247883 (Version 3)
Quarter: 2017Q4

REPORT INFORMATION
  Report Type: Spontaneous
  Country: IL (occurrence: ES)
  Receive Date: 20170217
  Receipt Date: 20171010
  Transmission Date: 20180320
  Serious: Yes (Death, Life-Threatening)
  Sender: FDA-Public Use
  Company Number: IL-ALLERGAN-1705831US

PATIENT
  Age: 68 Year
  Sex: Male

DRUGS (2)
  1. TIGECYCLINE. [Concomitant]
     Active Substance: TIGECYCLINE
     Indication: PATHOGEN RESISTANCE
     Dosage: UNK
     Route: 065
  2. CEFTAZIDIME;AVIBACTAM UNK [Suspect]
     Active Substance: AVIBACTAM SODIUM\CEFTAZIDIME
     Indication: PATHOGEN RESISTANCE
     Dosage: UNK
     Route: 042
     Dates: start: 20150423

REACTIONS (2)
  - Drug ineffective [Unknown]
  - Treatment failure [Fatal]
